FAERS Safety Report 11938557 (Version 1)
Quarter: 2016Q1

REPORT INFORMATION
  Report Type: Spontaneous
  Country: US (occurrence: None)
  Receive Date: 20160120
  Receipt Date: 20160120
  Transmission Date: 20160526
  Serious: Yes (Other)
  Sender: FDA-Public Use
  Company Number: None

PATIENT
  Age: 76 Year
  Sex: Female
  Weight: 130 kg

DRUGS (16)
  1. ALLOPURINOL. [Concomitant]
     Active Substance: ALLOPURINOL
  2. INSULIN ASPART [Concomitant]
     Active Substance: INSULIN ASPART
  3. IMDUR [Concomitant]
     Active Substance: ISOSORBIDE MONONITRATE
  4. AMOXICILLIN. [Concomitant]
     Active Substance: AMOXICILLIN
  5. OMEPRAZOLE. [Concomitant]
     Active Substance: OMEPRAZOLE
  6. AMIODARONE [Concomitant]
     Active Substance: AMIODARONE
  7. ATORVASTATIN [Concomitant]
     Active Substance: ATORVASTATIN
  8. CIPROFLOXACIN 250 MG [Suspect]
     Active Substance: CIPROFLOXACIN
     Indication: CELLULITIS
     Route: 048
     Dates: start: 20160107, end: 20160119
  9. LEVOTHYROXINE. [Concomitant]
     Active Substance: LEVOTHYROXINE
  10. CIPROFLOXACIN 250 MG [Suspect]
     Active Substance: CIPROFLOXACIN
     Indication: URINARY TRACT INFECTION
     Route: 048
     Dates: start: 20160107, end: 20160119
  11. APAP [Concomitant]
     Active Substance: ACETAMINOPHEN
  12. WARFARIN [Concomitant]
     Active Substance: WARFARIN
  13. DIPHENHYDRAMINE. [Concomitant]
     Active Substance: DIPHENHYDRAMINE
  14. NYSTATIN. [Concomitant]
     Active Substance: NYSTATIN
  15. ONDANSETRON [Concomitant]
     Active Substance: ONDANSETRON
  16. CARVEDILOL. [Concomitant]
     Active Substance: CARVEDILOL

REACTIONS (4)
  - Tremor [None]
  - Creatinine renal clearance decreased [None]
  - Hallucination [None]
  - Therapy change [None]

NARRATIVE: CASE EVENT DATE: 20160114
